FAERS Safety Report 25651688 (Version 1)
Quarter: 2025Q3

REPORT INFORMATION
  Report Type: Spontaneous
  Country: US (occurrence: US)
  Receive Date: 20250806
  Receipt Date: 20250806
  Transmission Date: 20251021
  Serious: Yes (Other)
  Sender: PFIZER
  Company Number: US-PFIZER INC-202500156971

PATIENT
  Sex: Female

DRUGS (3)
  1. TUKYSA [Suspect]
     Active Substance: TUCATINIB
  2. HERCEPTIN [Suspect]
     Active Substance: TRASTUZUMAB
  3. CAPECITABINE [Suspect]
     Active Substance: CAPECITABINE

REACTIONS (1)
  - Malignant neoplasm progression [Unknown]
